FAERS Safety Report 7594111-X (Version None)
Quarter: 2011Q3

REPORT INFORMATION
  Report Type: 
  Country: None (occurrence: None)
  Receive Date: 20110706
  Receipt Date: 20110630
  Transmission Date: 20111222
  Serious: Yes (Other)
  Sender: FDA-Public Use
  Company Number: CN-ABBOTT-11P-035-0835825-00

PATIENT
  Age: 29 Year
  Sex: Male

DRUGS (2)
  1. DEPAKENE [Suspect]
     Indication: EPILEPSY
     Dosage: DAILY
     Route: 048
     Dates: start: 20090101
  2. DEPAKENE [Suspect]
     Route: 048

REACTIONS (4)
  - AGITATION [None]
  - DEPRESSION [None]
  - WEIGHT INCREASED [None]
  - MOOD SWINGS [None]
